FAERS Safety Report 6106143-9 (Version None)
Quarter: 2009Q1

REPORT INFORMATION
  Report Type: 
  Country: None (occurrence: None)
  Receive Date: 20090306
  Receipt Date: 20090225
  Transmission Date: 20090719
  Serious: Yes (Other)
  Sender: FDA-Public Use
  Company Number: ZA-ABBOTT-09P-143-0558945-00

PATIENT
  Age: 13 Month

DRUGS (8)
  1. RITONAVIR [Suspect]
     Indication: ANTIRETROVIRAL THERAPY
     Dosage: FULL STRENGTH
  2. LOPINAVIR AND RITONAVIR [Suspect]
     Indication: ANTIRETROVIRAL THERAPY
     Dosage: NOT REPORTED
  3. STAVUDINE [Suspect]
     Indication: ANTIRETROVIRAL THERAPY
     Dosage: NOT REPORTED
  4. LAMIVUDINE [Suspect]
     Indication: ANTIRETROVIRAL THERAPY
     Dosage: NOT REPORTED
  5. AZT [Concomitant]
     Indication: DRUG USE FOR UNKNOWN INDICATION
     Dosage: SHORT COURSE
  6. RIFAMPICIN [Concomitant]
     Indication: PULMONARY TUBERCULOSIS
     Dosage: NOT REPORTED
  7. ISONIAZID [Concomitant]
     Indication: PULMONARY TUBERCULOSIS
     Dosage: NOT REPORTED
  8. PYRAZINAMIDE [Concomitant]
     Indication: PULMONARY TUBERCULOSIS
     Dosage: NOT REPORTED

REACTIONS (1)
  - MULTIPLE-DRUG RESISTANCE [None]
